FAERS Safety Report 6604700-4 (Version None)
Quarter: 2010Q1

REPORT INFORMATION
  Report Type: 
  Country: None (occurrence: None)
  Receive Date: 20100226
  Receipt Date: 20100217
  Transmission Date: 20100710
  Serious: Yes (Other)
  Sender: FDA-Public Use
  Company Number: PT-ROCHE-686255

PATIENT
  Sex: Male
  Weight: 105 kg

DRUGS (4)
  1. CELLCEPT [Suspect]
     Indication: MULTIPLE SCLEROSIS
     Route: 048
     Dates: start: 20091113
  2. ZARATOR [Concomitant]
     Dosage: DOSE 1 TABLET IN THE EVENING
     Route: 048
     Dates: start: 20080101, end: 20100115
  3. TEVETEN HCT [Concomitant]
     Indication: BLOOD PRESSURE DECREASED
     Dosage: DRUG REPORTED AS TEVETEN PLUS (EPOSARTAN / HYDROCHLOROTHIAZIDE) 600/12.5 MG TABLETS
     Route: 048
  4. ALLOPURINOL [Concomitant]
     Indication: GOUT
     Route: 048

REACTIONS (3)
  - ARTHRALGIA [None]
  - MUSCLE RIGIDITY [None]
  - MYALGIA [None]
